FAERS Safety Report 23304454 (Version 1)
Quarter: 2023Q4

REPORT INFORMATION
  Report Type: Spontaneous
  Country: TR (occurrence: TR)
  Receive Date: 20231218
  Receipt Date: 20231218
  Transmission Date: 20240109
  Serious: Yes (Hospitalization, Other)
  Sender: FDA-Public Use
  Company Number: TR-PURACAP-TR-2023EPCLIT01825

PATIENT
  Sex: Female

DRUGS (1)
  1. AMLODIPINE [Suspect]
     Active Substance: AMLODIPINE BESYLATE
     Indication: Product used for unknown indication
     Dosage: 5 TABLETS OF AMLODIPINE FOR TOTAL 50MG
     Route: 048

REACTIONS (4)
  - Vasoplegia syndrome [Unknown]
  - Toxicity to various agents [Unknown]
  - Hypotension [Recovering/Resolving]
  - Intentional overdose [Unknown]
